FAERS Safety Report 4450681-1 (Version None)
Quarter: 2004Q3

REPORT INFORMATION
  Report Type: 
  Country: None (occurrence: None)
  Receive Date: 20040914
  Receipt Date: 20040914
  Transmission Date: 20050211
  Serious: Yes (Hospitalization)
  Sender: FDA-Public Use
  Company Number: None

PATIENT
  Sex: Female

DRUGS (1)
  1. PROLIXIN [Suspect]
     Indication: HYPERKINESIA
     Dosage: 15 MG QD , 15 MG TID

REACTIONS (1)
  - PHARMACEUTICAL PRODUCT COMPLAINT [None]
